FAERS Safety Report 25897648 (Version 5)
Quarter: 2025Q4

REPORT INFORMATION
  Report Type: Report from Study
  Country: US (occurrence: None)
  Receive Date: 20251008
  Receipt Date: 20251204
  Transmission Date: 20260117
  Serious: Yes (Hospitalization, Other)
  Sender: UCB
  Company Number: US-UCBSA-2025058928

PATIENT
  Weight: 42.6 kg

DRUGS (10)
  1. FENFLURAMINE [Suspect]
     Active Substance: FENFLURAMINE
     Indication: Lennox-Gastaut syndrome
     Dosage: 3 MILLILITER, 2X/DAY (BID)
  2. FENFLURAMINE [Suspect]
     Active Substance: FENFLURAMINE
     Dosage: 3 MILLILITER, 2X/DAY (BID)
  3. FENFLURAMINE [Suspect]
     Active Substance: FENFLURAMINE
     Dosage: 0.31 MILLIGRAM/KILOGRAM/DAY (13.2 MILLIGRAM/DAY)
  4. FENFLURAMINE [Suspect]
     Active Substance: FENFLURAMINE
     Dosage: 3 MILLILITER, 2X/DAY (BID)
  5. FENFLURAMINE [Suspect]
     Active Substance: FENFLURAMINE
     Dosage: 0.296 MILLIGRAM PER KILOGRAM PER DAY TOTALLY 13.2 MILLIGRAM PER DAY
  6. ATROPINE [Suspect]
     Active Substance: ATROPINE
     Indication: Product used for unknown indication
     Dosage: UNK
  7. ONFI [Concomitant]
     Active Substance: CLOBAZAM
     Indication: Seizure
     Dosage: 4 MILLILITER, 2X/DAY (BID)
  8. Lemotrigine ODT [Concomitant]
     Indication: Seizure
     Dosage: 100 MILLIGRAM, 2X/DAY (BID)
  9. Lemotrigine ODT [Concomitant]
     Dosage: 50 MILLIGRAM, ONCE DAILY (QD)
  10. Chlorozepate [Concomitant]
     Indication: Seizure
     Dosage: 3.75 MILLIGRAM, 3X/DAY (TID)

REACTIONS (5)
  - COVID-19 [Not Recovered/Not Resolved]
  - Right-to-left cardiac shunt [Not Recovered/Not Resolved]
  - Dysuria [Not Recovered/Not Resolved]
  - Pruritus [Recovered/Resolved]
  - Laboratory test abnormal [Recovered/Resolved]
